FAERS Safety Report 5019925-1 (Version None)
Quarter: 2006Q2

REPORT INFORMATION
  Report Type: 
  Country: None (occurrence: None)
  Receive Date: 20060607
  Receipt Date: 20060530
  Transmission Date: 20061013
  Serious: Yes (Death, Hospitalization)
  Sender: FDA-Public Use
  Company Number: TW-BRISTOL-MYERS SQUIBB COMPANY-13393699

PATIENT
  Age: 70 Year
  Sex: Male

DRUGS (8)
  1. METHOTREXATE [Suspect]
     Indication: PSORIATIC ARTHROPATHY
     Route: 048
  2. FOLATE [Concomitant]
  3. MELOXICAM [Concomitant]
  4. CARVEDILOL [Concomitant]
  5. MODURETIC 5-50 [Concomitant]
  6. AMILORIDE HCL [Concomitant]
  7. RAMIPRIL [Concomitant]
  8. CLOPIDOGREL BISULFATE [Concomitant]

REACTIONS (5)
  - GASTROINTESTINAL HAEMORRHAGE [None]
  - PANCYTOPENIA [None]
  - PERITONITIS [None]
  - PNEUMONIA [None]
  - SEPTIC SHOCK [None]
